FAERS Safety Report 4344015-0 (Version None)
Quarter: 2004Q2

REPORT INFORMATION
  Report Type: 
  Country: None (occurrence: None)
  Receive Date: 20040419
  Receipt Date: 20040405
  Transmission Date: 20050107
  Serious: Yes (Hospitalization)
  Sender: FDA-Public Use
  Company Number: A01200401384

PATIENT
  Age: 56 Year
  Sex: Male

DRUGS (1)
  1. ELOXATIN [Suspect]
     Indication: COLON CANCER METASTATIC
     Dosage: 130 MG Q3W   (THERAPY DURATION: A FEW HOURS)
     Route: 042
     Dates: start: 20040323, end: 20040323

REACTIONS (2)
  - ACUTE PULMONARY OEDEMA [None]
  - PYREXIA [None]
